FAERS Safety Report 16494255 (Version 1)
Quarter: 2019Q2

REPORT INFORMATION
  Report Type: Spontaneous
  Country: US (occurrence: US)
  Receive Date: 20190628
  Receipt Date: 20190628
  Transmission Date: 20190711
  Serious: Yes (Hospitalization, Other)
  Sender: FDA-Public Use
  Company Number: US-SA-2019SA174489

PATIENT
  Age: 32 Year
  Sex: Male

DRUGS (9)
  1. FAT EMULSION NOS [Concomitant]
     Active Substance: EGG PHOSPHOLIPIDS\SAFFLOWER OIL\SOYBEAN OIL
     Dosage: 0.5 ML/KG, QH UNTIL 17:00 THE NEXT DAY
  2. LEVOTHYROXINE SODIUM. [Suspect]
     Active Substance: LEVOTHYROXINE SODIUM
     Dosage: 1.125 MG
  3. QUETIAPINE FUMARATE. [Suspect]
     Active Substance: QUETIAPINE FUMARATE
     Dosage: UNKNOWN AMOUNT OR STRENGTH
  4. ZOLPIDEM TARTRATE. [Suspect]
     Active Substance: ZOLPIDEM TARTRATE
     Dosage: 200 MG
  5. BENAZEPRIL [Suspect]
     Active Substance: BENAZEPRIL HYDROCHLORIDE
     Dosage: 32 DF
  6. VERAPAMIL HYDROCHLORIDE. [Suspect]
     Active Substance: VERAPAMIL HYDROCHLORIDE
     Dosage: 13.44 G; SUSTAINED RELEASE
  7. BUPROPION HYDROCHLORIDE. [Suspect]
     Active Substance: BUPROPION HYDROCHLORIDE
     Dosage: 4.8 G
  8. FAT EMULSION NOS [Concomitant]
     Active Substance: EGG PHOSPHOLIPIDS\SAFFLOWER OIL\SOYBEAN OIL
     Dosage: 20% OVER 20 MIN AT 17:40
  9. CLONAZEPAM. [Suspect]
     Active Substance: CLONAZEPAM
     Dosage: 22 MG

REACTIONS (11)
  - Incoherent [Recovered/Resolved]
  - Nodal arrhythmia [Recovered/Resolved]
  - Gastrointestinal sounds abnormal [Recovered/Resolved]
  - Slow response to stimuli [Recovered/Resolved]
  - Mydriasis [Recovered/Resolved]
  - Crepitations [Recovered/Resolved]
  - Shock [Recovered/Resolved]
  - Peripheral coldness [Recovered/Resolved]
  - Dry skin [Recovered/Resolved]
  - Pupillary reflex impaired [Recovered/Resolved]
  - Overdose [Recovered/Resolved]
